FAERS Safety Report 5341591-6 (Version None)
Quarter: 2007Q2

REPORT INFORMATION
  Report Type: 
  Country: None (occurrence: None)
  Receive Date: 20070601
  Receipt Date: 20070523
  Transmission Date: 20071010
  Serious: Yes (Other)
  Sender: FDA-Public Use
  Company Number: US-JNJFOC-20070400688

PATIENT
  Sex: Female
  Weight: 58.97 kg

DRUGS (9)
  1. TOPAMAX [Suspect]
     Indication: MIGRAINE PROPHYLAXIS
     Route: 048
  2. TOPROL-XL [Concomitant]
  3. TOPROL-XL [Concomitant]
     Indication: PAIN PROPHYLAXIS
  4. NEXIUM [Concomitant]
     Indication: ULCER
  5. MIACALCIN [Concomitant]
     Indication: OSTEOPENIA
  6. AMERGE [Concomitant]
     Indication: MIGRAINE
  7. GLUCOSAMINE CHONDROITON [Concomitant]
     Indication: ARTHRITIS
     Dosage: 2 CUPS DAILY
     Route: 048
  8. CALCIUM PLUS D [Concomitant]
     Indication: NUTRITIONAL SUPPORT
     Route: 048
  9. VITAMIN [Concomitant]
     Indication: NUTRITIONAL SUPPORT

REACTIONS (1)
  - OSTEOPENIA [None]
